FAERS Safety Report 8806482 (Version 1)
Quarter: 2012Q4

REPORT INFORMATION
  Report Type: Spontaneous
  Country: US (occurrence: None)
  Receive Date: 20120918
  Receipt Date: 20120918
  Transmission Date: 20130627
  Serious: Yes (Other)
  Sender: FDA-Public Use
  Company Number: AUR-APL-2012-03991

PATIENT
  Age: 16 Year
  Sex: Female

DRUGS (13)
  1. OLANZAPINE [Suspect]
     Indication: NAUSEA
     Dosage: 2.5 - 5 mg, Unknown
     Route: 065
  2. QUETIAPINE [Suspect]
     Indication: DEPRESSION
     Dosage: Titrated up to a total daily dose of 62.5mg, Unknown
  3. QUETIAPINE [Suspect]
     Indication: DEPRESSION
  4. METHOTREXATE SODIUM [Suspect]
     Indication: HODGKIN^S LYMPHOMA
  5. VINCRISTINE [Suspect]
     Indication: HODGKIN^S LYMPHOMA
  6. PREDNISOLONE [Suspect]
     Indication: HODGKIN^S LYMPHOMA
  7. PROCARBAZINE [Suspect]
     Indication: HODGKIN^S LYMPHOMA
  8. DEXAMETHASONE (DEXAMETHASONE) [Concomitant]
  9. PROMETHAZINE (PROMETHAZINE) [Concomitant]
  10. MACROGOL (MACROGOL) [Concomitant]
  11. GABAPENTIN (GABAPENTIN) [Concomitant]
  12. ESOMEPRAZOLE (ESOMEPRAZOLE) [Concomitant]
  13. ONDANSETRON (ONDANSETRON) [Concomitant]

REACTIONS (16)
  - Nausea [None]
  - Suicidal ideation [None]
  - Depression [None]
  - Anxiety [None]
  - Weight increased [None]
  - Fear [None]
  - Social avoidant behaviour [None]
  - Constricted affect [None]
  - Self esteem decreased [None]
  - Somnolence [None]
  - Fatigue [None]
  - Apathy [None]
  - Electrocardiogram QT prolonged [None]
  - Sinus tachycardia [None]
  - Hodgkin^s disease recurrent [None]
  - Treatment failure [None]
